FAERS Safety Report 5079150-5 (Version None)
Quarter: 2006Q3

REPORT INFORMATION
  Report Type: 
  Country: None (occurrence: None)
  Receive Date: 20060814
  Receipt Date: 20060613
  Transmission Date: 20061208
  Serious: Yes (Other)
  Sender: FDA-Public Use
  Company Number: US-GLAXOSMITHKLINE-A0608835A

PATIENT
  Age: 59 Year
  Sex: Male

DRUGS (2)
  1. FLONASE [Suspect]
     Indication: RHINITIS ALLERGIC
     Dosage: 1SPR PER DAY
     Route: 045
     Dates: start: 20000101, end: 20050601
  2. ZYRTEC [Concomitant]

REACTIONS (5)
  - BLINDNESS [None]
  - CATARACT [None]
  - CATARACT NUCLEAR [None]
  - CATARACT SUBCAPSULAR [None]
  - VISION BLURRED [None]
